FAERS Safety Report 5535755-6 (Version None)
Quarter: 2007Q4

REPORT INFORMATION
  Report Type: 
  Country: None (occurrence: None)
  Receive Date: 20071206
  Receipt Date: 20070329
  Transmission Date: 20080405
  Serious: Yes (Other)
  Sender: FDA-Public Use
  Company Number: US-AMGEN-KDL218216

PATIENT
  Sex: Female
  Weight: 100.3 kg

DRUGS (8)
  1. ENBREL [Suspect]
     Indication: RHEUMATOID ARTHRITIS
     Route: 058
     Dates: start: 20040610, end: 20061110
  2. PRILOSEC [Concomitant]
  3. ULTRAM [Concomitant]
     Dates: start: 20040901
  4. FOLIC ACID [Concomitant]
     Dates: start: 20040422
  5. METHOTREXATE [Concomitant]
     Dates: start: 20040422
  6. ATIVAN [Concomitant]
  7. TOPROL-XL [Concomitant]
  8. ISOSORBIDE DINITRATE [Concomitant]

REACTIONS (2)
  - METASTATIC MALIGNANT MELANOMA [None]
  - RASH [None]
